FAERS Safety Report 10409993 (Version 1)
Quarter: 2014Q3

REPORT INFORMATION
  Report Type: Report from Study
  Country: ZA (occurrence: ZA)
  Receive Date: 20140826
  Receipt Date: 20140826
  Transmission Date: 20150326
  Serious: Yes (Other)
  Sender: FDA-Public Use
  Company Number: ZA-BAYER-2014-060347

PATIENT
  Sex: Female

DRUGS (1)
  1. BETAFERON [Suspect]
     Active Substance: INTERFERON BETA-1B
     Dosage: 0.5 ML, UNK

REACTIONS (10)
  - Headache [None]
  - Drug hypersensitivity [None]
  - Pyrexia [None]
  - Dysphagia [None]
  - Malaise [None]
  - Vasculitis [None]
  - Rash [Recovered/Resolved]
  - Cerebrovascular accident [None]
  - Fatigue [None]
  - Speech disorder [None]

NARRATIVE: CASE EVENT DATE: 20091130
